FAERS Safety Report 6142855-9 (Version None)
Quarter: 2009Q1

REPORT INFORMATION
  Report Type: 
  Country: None (occurrence: None)
  Receive Date: 20090330
  Receipt Date: 20090319
  Transmission Date: 20090719
  Serious: Yes (Other)
  Sender: FDA-Public Use
  Company Number: AEUSA200900053

PATIENT
  Age: 41 Year
  Sex: Female

DRUGS (6)
  1. IGIV (MANUFACTURER UNIKNOWN) [Suspect]
     Indication: TRANSPLANT REJECTION
     Dosage: 2 GM/KG;IX;IV
     Route: 042
  2. RITUXIMAB [Suspect]
     Indication: TRANSPLANT REJECTION
     Dosage: 375 MG/M2;IX;IV
     Route: 042
  3. TACROLIMUS [Suspect]
     Indication: IMMUNOSUPPRESSANT DRUG THERAPY
  4. CYCLOSPORINE [Concomitant]
  5. MYCOPHENOLTE MOFETIL [Concomitant]
  6. PREDNISONE TAB [Concomitant]

REACTIONS (2)
  - MENINGITIS ASEPTIC [None]
  - VITH NERVE PARALYSIS [None]
